FAERS Safety Report 9312054 (Version 1)
Quarter: 2013Q1

REPORT INFORMATION
  Report Type: Spontaneous
  Country: DE (occurrence: None)
  Receive Date: 20130102
  Receipt Date: 20130102
  Transmission Date: 20140127
  Serious: Yes (Death)
  Sender: FDA-Public Use
  Company Number: AML020120020

PATIENT
  Age: 52 Year
  Sex: Female

DRUGS (7)
  1. AMLODIPINE BESYLATE [Suspect]
     Indication: PRODUCT USED FOR UNKNOWN INDICATION
     Dosage: 2.5MG, UNK, ORAL
     Route: 048
  2. DOXEPIN [Suspect]
     Indication: PRODUCT USED FOR UNKNOWN INDICATION
     Dosage: 25 MG, UNK, UNKNOWN
  3. PROTHIPENDYL [Suspect]
     Indication: PRODUCT USED FOR UNKNOWN INDICATION
     Dosage: UNK, UNK, UNKNOWN
  4. IBUPROFEN [Concomitant]
  5. DIAZEPAM [Concomitant]
  6. TILIDINE [Concomitant]
  7. METOPROLOL [Concomitant]

REACTIONS (8)
  - Toxicity to various agents [None]
  - Drug interaction [None]
  - Incorrect dose administered [None]
  - Salivary hypersecretion [None]
  - Somnolence [None]
  - Gait disturbance [None]
  - Pain [None]
  - Insomnia [None]
